FAERS Safety Report 12308111 (Version 4)
Quarter: 2016Q4

REPORT INFORMATION
  Report Type: Report from Study
  Country: DE (occurrence: DE)
  Receive Date: 20160426
  Receipt Date: 20161012
  Transmission Date: 20170207
  Serious: Yes (Hospitalization, Other)
  Sender: FDA-Public Use
  Company Number: DE-BRISTOL-MYERS SQUIBB COMPANY-BMS-2016-029794

PATIENT
  Age: 52 Year
  Sex: Male

DRUGS (1)
  1. ABATACEPT [Suspect]
     Active Substance: ABATACEPT
     Indication: RHEUMATOID ARTHRITIS
     Dosage: 125 MG, QWK
     Route: 058
     Dates: start: 20141220

REACTIONS (3)
  - Hepatic fibrosis [Not Recovered/Not Resolved]
  - Portal hypertension [Not Recovered/Not Resolved]
  - Biopsy liver [Not Recovered/Not Resolved]

NARRATIVE: CASE EVENT DATE: 201510
